FAERS Safety Report 5530532-4 (Version None)
Quarter: 2007Q4

REPORT INFORMATION
  Report Type: 
  Country: None (occurrence: None)
  Receive Date: 20071130
  Receipt Date: 20071121
  Transmission Date: 20080405
  Serious: Yes (Other)
  Sender: FDA-Public Use
  Company Number: US-ASTRAZENECA-2006UW01475

PATIENT
  Age: 460 Month
  Sex: Male
  Weight: 118.2 kg

DRUGS (8)
  1. SEROQUEL [Suspect]
     Indication: DEPRESSION
     Dosage: 75 MG, 300 MG
     Route: 048
     Dates: start: 20010401
  2. SEROQUEL [Suspect]
     Indication: ANXIETY
     Dosage: 75 MG, 300 MG
     Route: 048
     Dates: start: 20010401
  3. SEROQUEL [Suspect]
     Indication: PANIC DISORDER
     Dosage: 75 MG, 300 MG
     Route: 048
     Dates: start: 20010401
  4. RISPERDAL [Suspect]
     Dosage: 1 MG TO 6 MG
     Dates: start: 20001101, end: 20010401
  5. PAXIL [Concomitant]
     Dates: start: 20000101
  6. ZOLOFT [Concomitant]
     Dates: start: 20000101
  7. NEURONTIN [Concomitant]
     Dates: start: 20000101
  8. AMBIEN [Concomitant]
     Dates: start: 20000101

REACTIONS (2)
  - DIABETES MELLITUS [None]
  - DIABETIC RETINOPATHY [None]
